FAERS Safety Report 7141558-1 (Version None)
Quarter: 2010Q4

REPORT INFORMATION
  Report Type: 
  Country: None (occurrence: None)
  Receive Date: 20101126
  Receipt Date: 20101112
  Transmission Date: 20110411
  Serious: Yes (Hospitalization)
  Sender: FDA-Public Use
  Company Number: 022107

PATIENT
  Sex: Female

DRUGS (7)
  1. LACOSAMIDE [Suspect]
     Indication: EPILEPSY
     Dosage: SEE IMAGE: ORAL
     Route: 048
     Dates: start: 20090916, end: 20100121
  2. LACOSAMIDE [Suspect]
     Indication: EPILEPSY
     Dosage: SEE IMAGE: ORAL
     Route: 048
     Dates: start: 20100121, end: 20100218
  3. LACOSAMIDE [Suspect]
     Indication: EPILEPSY
     Dosage: SEE IMAGE: ORAL
     Route: 048
     Dates: start: 20100218, end: 20100528
  4. LACOSAMIDE [Suspect]
     Indication: EPILEPSY
     Dosage: SEE IMAGE: ORAL
     Route: 048
     Dates: start: 20090501
  5. LACOSAMIDE [Suspect]
     Indication: EPILEPSY
     Dosage: SEE IMAGE: ORAL
     Route: 048
     Dates: start: 20100528
  6. LEVETIRACETAM [Concomitant]
  7. ZONISAMIDE [Concomitant]

REACTIONS (5)
  - AGITATION [None]
  - CONDITION AGGRAVATED [None]
  - CRYING [None]
  - FEELING HOT [None]
  - GENERALISED ANXIETY DISORDER [None]
